FAERS Safety Report 14034635 (Version 5)
Quarter: 2018Q4

REPORT INFORMATION
  Report Type: Report from Study
  Country: US (occurrence: US)
  Receive Date: 20171003
  Receipt Date: 20181218
  Transmission Date: 20190204
  Serious: Yes (Hospitalization, Other)
  Sender: FDA-Public Use
  Company Number: US-AMGEN-USASL2017112812

PATIENT
  Age: 76 Year
  Sex: Male
  Weight: 81.63 kg

DRUGS (4)
  1. REPATHA [Suspect]
     Active Substance: EVOLOCUMAB
     Indication: ARTERIOSCLEROSIS CORONARY ARTERY
     Dosage: 140 MG, Q2WK
     Route: 058
     Dates: start: 201611
  2. REPATHA [Suspect]
     Active Substance: EVOLOCUMAB
     Indication: HYPERCHOLESTEROLAEMIA
  3. REPATHA [Suspect]
     Active Substance: EVOLOCUMAB
     Indication: HYPERLIPIDAEMIA
  4. REPATHA [Suspect]
     Active Substance: EVOLOCUMAB
     Indication: BLOOD CHOLESTEROL INCREASED

REACTIONS (11)
  - Skin cancer [Unknown]
  - Muscle spasms [Unknown]
  - Chest injury [Unknown]
  - Abdominal pain [Unknown]
  - Secretion discharge [Unknown]
  - Pulmonary fibrosis [Recovering/Resolving]
  - Chest pain [Not Recovered/Not Resolved]
  - Oropharyngeal pain [Unknown]
  - Respiratory tract congestion [Not Recovered/Not Resolved]
  - Fall [Unknown]
  - Rhinorrhoea [Unknown]

NARRATIVE: CASE EVENT DATE: 20170219
